FAERS Safety Report 6687371-0 (Version None)
Quarter: 2010Q2

REPORT INFORMATION
  Report Type: 
  Country: None (occurrence: None)
  Receive Date: 20100419
  Receipt Date: 20100408
  Transmission Date: 20101027
  Serious: Yes (Other)
  Sender: FDA-Public Use
  Company Number: US-SANOFI-AVENTIS-2010SA021198

PATIENT
  Age: 58 Year
  Sex: Female

DRUGS (9)
  1. LANTUS [Suspect]
     Indication: TYPE 2 DIABETES MELLITUS
     Dosage: 10 TO 20 UNITS
     Route: 058
     Dates: start: 20100401
  2. ADVIL [Suspect]
     Dosage: 3 PILLS
     Route: 065
     Dates: start: 20100401
  3. VITAMINS [Concomitant]
  4. MINERALS NOS [Concomitant]
  5. CALCIUM W/MAGNESIUM/VITAMIN D [Concomitant]
  6. FISH OIL [Concomitant]
  7. METFORMIN HCL [Concomitant]
  8. DIURETICS [Concomitant]
  9. BENICAR [Concomitant]

REACTIONS (7)
  - BLOOD PRESSURE INCREASED [None]
  - EYE SWELLING [None]
  - FEELING ABNORMAL [None]
  - HYPERSENSITIVITY [None]
  - JOINT SWELLING [None]
  - PANIC ATTACK [None]
  - THROAT TIGHTNESS [None]
